FAERS Safety Report 5460028-X (Version None)
Quarter: 2007Q3

REPORT INFORMATION
  Report Type: 
  Country: None (occurrence: None)
  Receive Date: 20070919
  Receipt Date: 20070507
  Transmission Date: 20080115
  Serious: Yes (Other)
  Sender: FDA-Public Use
  Company Number: US-ASTRAZENECA-2007UW09733

PATIENT
  Age: 439 Month
  Sex: Male
  Weight: 72.7 kg

DRUGS (10)
  1. SEROQUEL [Suspect]
     Indication: SCHIZOPHRENIFORM DISORDER
     Route: 048
     Dates: start: 20000602
  2. SEROQUEL [Suspect]
     Indication: DEPRESSION
     Route: 048
     Dates: start: 20000602
  3. SEROQUEL [Suspect]
     Dosage: 100 MG, 300 MG
     Route: 048
     Dates: start: 20000622, end: 20030308
  4. SEROQUEL [Suspect]
     Dosage: 100 MG, 300 MG
     Route: 048
     Dates: start: 20000622, end: 20030308
  5. SEROQUEL [Suspect]
     Dosage: 100 MG, 25 MG
     Route: 048
     Dates: start: 20030312, end: 20060206
  6. SEROQUEL [Suspect]
     Dosage: 100 MG, 25 MG
     Route: 048
     Dates: start: 20030312, end: 20060206
  7. SEROQUEL [Suspect]
     Dosage: 25 MG, 5 MG
     Route: 048
     Dates: start: 20060405, end: 20060606
  8. SEROQUEL [Suspect]
     Dosage: 25 MG, 5 MG
     Route: 048
     Dates: start: 20060405, end: 20060606
  9. ZYPREXA [Suspect]
     Indication: DEPRESSION
     Dates: start: 20060706
  10. ABILIFY [Concomitant]
     Dates: start: 20060615

REACTIONS (2)
  - DIABETES MELLITUS [None]
  - PANCREATITIS [None]
